FAERS Safety Report 5472647-5 (Version None)
Quarter: 2007Q4

REPORT INFORMATION
  Report Type: 
  Country: None (occurrence: None)
  Receive Date: 20071001
  Receipt Date: 20060821
  Transmission Date: 20080405
  Serious: Yes (Other)
  Sender: FDA-Public Use
  Company Number: US-ASTRAZENECA-2006UW15573

PATIENT
  Age: 75 Year
  Sex: Female
  Weight: 60.3 kg

DRUGS (6)
  1. ARIMIDEX [Suspect]
     Indication: BREAST CANCER FEMALE
     Route: 048
     Dates: start: 20060401, end: 20060701
  2. FASLODEX [Concomitant]
     Route: 030
  3. COUMADIN [Concomitant]
     Indication: THROMBOSIS
  4. SYNTHROID [Concomitant]
  5. INDERAL [Concomitant]
     Indication: TREMOR
  6. HERCEPTIN [Concomitant]

REACTIONS (1)
  - DISEASE PROGRESSION [None]
